FAERS Safety Report 4686673-7 (Version None)
Quarter: 2005Q2

REPORT INFORMATION
  Report Type: 
  Country: None (occurrence: None)
  Receive Date: 20050608
  Receipt Date: 20050602
  Transmission Date: 20051028
  Serious: Yes (Life-Threatening)
  Sender: FDA-Public Use
  Company Number: 2005-128952-NL

PATIENT
  Age: 64 Year
  Sex: Male

DRUGS (3)
  1. VECURONIUM BROMIDE (SEE ATTACHED PAGES FOR ADDITIONAL SUSPECT DRUGS) [Suspect]
     Indication: GENERAL ANAESTHESIA
     Dates: start: 20041022, end: 20041022
  2. PROPOFOL (SEE ATTACHED PAGES FOR ADDITIONAL SUSPECT DRUGS) [Suspect]
     Indication: GENERAL ANAESTHESIA
     Dates: start: 20041022, end: 20041022
  3. FENTANYL CITRATE [Suspect]
     Indication: GENERAL ANAESTHESIA
     Dates: start: 20041022, end: 20041022

REACTIONS (6)
  - ATRIOVENTRICULAR BLOCK COMPLETE [None]
  - AUTONOMIC NERVOUS SYSTEM IMBALANCE [None]
  - CARDIAC ARREST [None]
  - CORONARY ARTERY DISEASE [None]
  - PROCEDURAL COMPLICATION [None]
  - SINUS BRADYCARDIA [None]
